FAERS Safety Report 10765633 (Version 1)
Quarter: 2015Q1

REPORT INFORMATION
  Report Type: Spontaneous
  Country: US (occurrence: None)
  Receive Date: 20150204
  Receipt Date: 20150204
  Transmission Date: 20150721
  Serious: Yes (Hospitalization)
  Sender: FDA-Public Use
  Company Number: None

PATIENT
  Age: 15 Year
  Sex: Male
  Weight: 103.42 kg

DRUGS (3)
  1. LORAZEPAM 1 MG 3XD (6 DOSES ADMIN STARTING) [Concomitant]
  2. OLANZAPINE. [Suspect]
     Active Substance: OLANZAPINE
     Dosage: 5MG HS X 1 THEN Q4H   PRN NTE 20MG/DAY (NO PRN GIVEN)
     Dates: start: 20141017, end: 20141023
  3. HALOPERIDOL PO/IM PRN NTE 15MG/DAY (NONE ADMINISTERED) [Concomitant]

REACTIONS (1)
  - Neuroleptic malignant syndrome [None]

NARRATIVE: CASE EVENT DATE: 20141023
